FAERS Safety Report 5144529-X (Version None)
Quarter: 2006Q4

REPORT INFORMATION
  Report Type: 
  Country: None (occurrence: None)
  Receive Date: 20061031
  Receipt Date: 20061018
  Transmission Date: 20070319
  Serious: Yes (Death)
  Sender: FDA-Public Use
  Company Number: 02100-JPN-06-0497

PATIENT
  Age: 70 Year
  Sex: Male

DRUGS (3)
  1. CILOSTAZOL [Suspect]
     Dosage: 200 MG ORAL
     Route: 048
  2. ADRENOCORTICAL HORMONE PREPARATIONS [Concomitant]
  3. .. [Concomitant]

REACTIONS (1)
  - GASTROINTESTINAL HAEMORRHAGE [None]
